FAERS Safety Report 22262274 (Version 13)
Quarter: 2023Q4

REPORT INFORMATION
  Report Type: Spontaneous
  Country: CA (occurrence: CA)
  Receive Date: 20230428
  Receipt Date: 20231230
  Transmission Date: 20240109
  Serious: Yes (Hospitalization, Other)
  Sender: FDA-Public Use
  Company Number: CA-CELLTRION INC.-2023CA007111

PATIENT

DRUGS (15)
  1. INFLECTRA [Suspect]
     Active Substance: INFLIXIMAB-DYYB
     Indication: Crohn^s disease
     Dosage: 10 MG/KG, AT 0, 2, 6 WEEKS, THEN EVERY 8 WEEKS
     Route: 042
     Dates: start: 20190206, end: 20190220
  2. INFLECTRA [Suspect]
     Active Substance: INFLIXIMAB-DYYB
     Dosage: 10 MG/KG, AT WEEK 6, THEN EVERY 6 WEEKS
     Route: 042
     Dates: start: 20190320, end: 20190501
  3. INFLECTRA [Suspect]
     Active Substance: INFLIXIMAB-DYYB
     Dosage: 10 MG/KG, AT 0, 2, 6 WEEKS, THEN EVERY 4 WEEKS (REINDUCTION)
     Route: 042
     Dates: start: 20190705, end: 20221013
  4. INFLECTRA [Suspect]
     Active Substance: INFLIXIMAB-DYYB
     Dosage: 15 MG/KG, EVERY 4 WEEKS
     Route: 042
     Dates: start: 20221110, end: 20231026
  5. INFLECTRA [Suspect]
     Active Substance: INFLIXIMAB-DYYB
     Dosage: 15 MG/KG, EVERY 4 WEEKS
     Route: 042
     Dates: start: 20230302
  6. INFLECTRA [Suspect]
     Active Substance: INFLIXIMAB-DYYB
     Dosage: 15 MG/KG, EVERY 4 WEEKS
     Route: 042
     Dates: start: 20230331
  7. INFLECTRA [Suspect]
     Active Substance: INFLIXIMAB-DYYB
     Dosage: 15 MG/KG (1700MG), EVERY 4 WEEKS
     Route: 042
     Dates: start: 20230508
  8. INFLECTRA [Suspect]
     Active Substance: INFLIXIMAB-DYYB
     Dosage: 1700 MG (15 MG/KG), AFTER 4 WEEKS
     Route: 042
     Dates: start: 20230608
  9. INFLECTRA [Suspect]
     Active Substance: INFLIXIMAB-DYYB
     Dosage: 15 MG/KG, EVERY 4 WEEKS
     Route: 042
     Dates: start: 20230706
  10. INFLECTRA [Suspect]
     Active Substance: INFLIXIMAB-DYYB
     Dosage: 1665 MG, 3 WEEKS AND 4 DAYS
     Route: 042
     Dates: start: 20230731
  11. INFLECTRA [Suspect]
     Active Substance: INFLIXIMAB-DYYB
     Dosage: 30.9 MG/KG, AFTER 2 WEEKS AND 3 DAYS (EVERY 8 WEEK)
     Route: 042
     Dates: start: 20230817
  12. INFLECTRA [Suspect]
     Active Substance: INFLIXIMAB-DYYB
     Dosage: 10 MG/KG, EVERY 4 WEEK
     Route: 042
     Dates: start: 20231124
  13. INFLECTRA [Suspect]
     Active Substance: INFLIXIMAB-DYYB
     Dosage: 1140 MG, 3 WEEKS AND 3DAYS
     Route: 042
     Dates: start: 20231218
  14. METHOTREXATE [Concomitant]
     Active Substance: METHOTREXATE
     Dosage: 25 MG, WEEKLY
     Route: 058
  15. PREDNISONE [Concomitant]
     Active Substance: PREDNISONE
     Dosage: 10 MG
     Route: 048

REACTIONS (11)
  - Knee arthroplasty [Recovering/Resolving]
  - Cellulitis [Recovering/Resolving]
  - Bradycardia [Not Recovered/Not Resolved]
  - Condition aggravated [Not Recovered/Not Resolved]
  - Therapeutic response shortened [Unknown]
  - Infusion site induration [Recovering/Resolving]
  - Infusion site extravasation [Recovering/Resolving]
  - Off label use [Unknown]
  - Off label use [Unknown]
  - Off label use [Unknown]
  - Intentional product use issue [Unknown]

NARRATIVE: CASE EVENT DATE: 20190206
